FAERS Safety Report 16291059 (Version 2)
Quarter: 2019Q2

REPORT INFORMATION
  Report Type: Spontaneous
  Country: NL (occurrence: AT)
  Receive Date: 20190509
  Receipt Date: 20190613
  Transmission Date: 20190711
  Serious: Yes (Other)
  Sender: FDA-Public Use
  Company Number: AT-FRESENIUS KABI-FK201905171

PATIENT
  Age: 73 Year
  Sex: Female
  Weight: 60 kg

DRUGS (4)
  1. IRINOTECAN (MANUFACTURER UNKNOWN) [Suspect]
     Active Substance: IRINOTECAN
     Indication: BRAF GENE MUTATION
     Dosage: UNK
     Route: 042
     Dates: start: 20190325
  2. PANITUMUMAB [Suspect]
     Active Substance: PANITUMUMAB
     Indication: BRAF GENE MUTATION
     Dosage: UNK
     Route: 042
     Dates: start: 20190227, end: 20190325
  3. FLUOROURACIL. [Suspect]
     Active Substance: FLUOROURACIL
     Indication: BRAF GENE MUTATION
     Route: 042
     Dates: start: 20190102, end: 20190314
  4. BEVACIZUMAB. [Suspect]
     Active Substance: BEVACIZUMAB
     Indication: BRAF GENE MUTATION
     Route: 042
     Dates: start: 20190102, end: 20190131

REACTIONS (2)
  - BRAF gene mutation [Unknown]
  - Disease progression [Unknown]

NARRATIVE: CASE EVENT DATE: 20190411
